FAERS Safety Report 10426867 (Version 1)
Quarter: 2014Q3

REPORT INFORMATION
  Report Type: Spontaneous
  Country: US (occurrence: US)
  Receive Date: 20140903
  Receipt Date: 20140903
  Transmission Date: 20150326
  Serious: No
  Sender: FDA-Public Use
  Company Number: US-BAYER-2014-130381

PATIENT
  Age: 59 Year
  Sex: Male

DRUGS (2)
  1. SENSIPAR [Concomitant]
     Active Substance: CINACALCET HYDROCHLORIDE
     Indication: HYPERCALCAEMIA
     Dosage: 90 MG, DAILY
  2. SORAFENIB (RAF KINASE INHIBITOR) [Suspect]
     Active Substance: SORAFENIB
     Indication: PARATHYROID TUMOUR MALIGNANT
     Dosage: 400 MG, BID
     Route: 048

REACTIONS (4)
  - Off label use [None]
  - Alopecia [None]
  - Therapeutic response changed [None]
  - Hypertension [None]
